FAERS Safety Report 7716677-9 (Version None)
Quarter: 2011Q3

REPORT INFORMATION
  Report Type: 
  Country: None (occurrence: None)
  Receive Date: 20110829
  Receipt Date: 20110819
  Transmission Date: 20111222
  Serious: Yes (Hospitalization, Other)
  Sender: FDA-Public Use
  Company Number: US-BAYER-US-2006-002876

PATIENT
  Age: 63 Year
  Sex: Male

DRUGS (5)
  1. PLAVIX [Concomitant]
     Dosage: UNK
     Dates: start: 20101001
  2. ASPIRIN [Concomitant]
  3. ZOCOR [Concomitant]
     Indication: BLOOD CHOLESTEROL INCREASED
  4. BETASERON [Suspect]
     Indication: SECONDARY PROGRESSIVE MULTIPLE SCLEROSIS
     Dosage: 8 MIU, QOD BETAJECT
     Route: 058
     Dates: start: 20070726
  5. BETASERON [Suspect]
     Indication: RELAPSING-REMITTING MULTIPLE SCLEROSIS
     Dosage: 8 MIU, QOD
     Route: 058
     Dates: start: 20000220, end: 20070622

REACTIONS (10)
  - CEREBROVASCULAR ACCIDENT [None]
  - FEELING HOT [None]
  - PARAESTHESIA [None]
  - FLUSHING [None]
  - HYPOAESTHESIA [None]
  - BALANCE DISORDER [None]
  - HEMIPLEGIA [None]
  - GAIT DISTURBANCE [None]
  - CHEST DISCOMFORT [None]
  - ASTHENIA [None]
